FAERS Safety Report 10176249 (Version 4)
Quarter: 2014Q4

REPORT INFORMATION
  Report Type: Spontaneous
  Country: US (occurrence: US)
  Receive Date: 20140516
  Receipt Date: 20141124
  Transmission Date: 20150528
  Serious: Yes (Hospitalization)
  Sender: FDA-Public Use
  Company Number: US-PFIZER INC-2014133856

PATIENT
  Age: 71 Year
  Sex: Male
  Weight: 100 kg

DRUGS (1)
  1. LYRICA [Suspect]
     Active Substance: PREGABALIN
     Dosage: UNK
     Dates: start: 2013

REACTIONS (4)
  - Orthostatic hypotension [Recovering/Resolving]
  - Nasopharyngitis [Unknown]
  - Cardiac disorder [Unknown]
  - Influenza [Unknown]
